FAERS Safety Report 4944724-6 (Version None)
Quarter: 2006Q1

REPORT INFORMATION
  Report Type: 
  Country: None (occurrence: None)
  Receive Date: 20060113
  Receipt Date: 20050308
  Transmission Date: 20060701
  Serious: Yes (Other)
  Sender: FDA-Public Use
  Company Number: HQWYE587825AUG04

PATIENT
  Age: 67 Year
  Sex: Female
  Weight: 77.18 kg

DRUGS (3)
  1. PREMPRO [Suspect]
     Indication: HOT FLUSH
     Dosage: ORAL
     Route: 048
     Dates: start: 19970101
  2. PREMARIN [Suspect]
     Indication: HOT FLUSH
     Dosage: ORAL
     Route: 048
     Dates: start: 19830101
  3. PROVERA [Suspect]
     Indication: HOT FLUSH
     Dosage: ORAL
     Route: 048
     Dates: start: 19840101, end: 19970101

REACTIONS (3)
  - BREAST CANCER [None]
  - OVARIAN CANCER [None]
  - THROMBOSIS [None]
